FAERS Safety Report 6228914-0 (Version None)
Quarter: 2009Q2

REPORT INFORMATION
  Report Type: 
  Country: None (occurrence: None)
  Receive Date: 20090615
  Receipt Date: 20090605
  Transmission Date: 20091009
  Serious: Yes (Hospitalization)
  Sender: FDA-Public Use
  Company Number: NO-ROCHE-637198

PATIENT
  Sex: Female

DRUGS (5)
  1. CELLCEPT [Suspect]
     Route: 048
     Dates: start: 20031201
  2. CELLCEPT [Suspect]
     Dosage: DOSAGE REDUCED.
     Route: 048
     Dates: start: 20090515
  3. PLAQUENIL [Concomitant]
     Route: 048
     Dates: start: 20030801
  4. PLAQUENIL [Concomitant]
     Dosage: REDUCED DOSAGE.
     Route: 048
     Dates: start: 20090515
  5. MAREVAN [Concomitant]
     Indication: ANTIPHOSPHOLIPID SYNDROME
     Route: 048
     Dates: start: 20031001

REACTIONS (2)
  - BASAL CELL CARCINOMA [None]
  - THYROID CANCER [None]
